FAERS Safety Report 16149537 (Version 2)
Quarter: 2019Q2

REPORT INFORMATION
  Report Type: Spontaneous
  Country: NL (occurrence: FR)
  Receive Date: 20190402
  Receipt Date: 20190408
  Transmission Date: 20190711
  Serious: Yes (Other)
  Sender: FDA-Public Use
  Company Number: FR-FRESENIUS KABI-FK201903220

PATIENT
  Age: 5 Year
  Sex: Female
  Weight: 17 kg

DRUGS (2)
  1. SODIUM CHLORIDE (MANUFACTURER UNKNOWN) [Suspect]
     Active Substance: SODIUM CHLORIDE
     Indication: FLUID REPLACEMENT
     Route: 042
     Dates: start: 20190306, end: 20190306
  2. GLUCOSE (MANUFACTURER UNKNOWN) [Suspect]
     Active Substance: DEXTROSE
     Indication: FLUID REPLACEMENT
     Route: 042
     Dates: start: 20190306, end: 20190306

REACTIONS (4)
  - Eyelid oedema [Recovered/Resolved]
  - Fluid overload [Recovered/Resolved]
  - Product prescribing error [Recovered/Resolved]
  - Hyponatraemia [Recovered/Resolved]

NARRATIVE: CASE EVENT DATE: 20190306
